FAERS Safety Report 6899943-9 (Version None)
Quarter: 2010Q3

REPORT INFORMATION
  Report Type: 
  Country: None (occurrence: None)
  Receive Date: 20100803
  Receipt Date: 20061023
  Transmission Date: 20110219
  Serious: Yes (Death)
  Sender: FDA-Public Use
  Company Number: JP-NOVOPROD-257929

PATIENT
  Age: 85 Year
  Sex: Female

DRUGS (8)
  1. NOVOSEVEN [Suspect]
     Indication: HAEMORRHAGE
     Dosage: 4.8 MG X 34 IN TOTAL
     Dates: start: 20060908
  2. LASIX [Concomitant]
     Dosage: 20 MG, QD
     Route: 048
     Dates: start: 20060908, end: 20060911
  3. GASTER D [Concomitant]
     Dosage: 20 MG, QD
     Route: 048
     Dates: start: 20060908, end: 20060911
  4. PANSPORIN [Concomitant]
     Dosage: 2 G, QD
     Dates: start: 20060909, end: 20060911
  5. NEOPHYLLIN                         /00003701/ [Concomitant]
     Dosage: 250 MG, QD
     Route: 042
     Dates: start: 20060911
  6. OMEPRAL                            /00661202/ [Concomitant]
     Dosage: 20 MG, QD
     Route: 042
     Dates: start: 20060911
  7. PREDNISOLON                        /00016201/ [Concomitant]
     Dosage: 40 MG, QD
     Route: 042
     Dates: start: 20060911
  8. RED BLOOD CELLS [Concomitant]
     Dosage: 2-4 U
     Dates: start: 20060908, end: 20060911

REACTIONS (2)
  - HAEMORRHAGE [None]
  - SHOCK HAEMORRHAGIC [None]
